FAERS Safety Report 16153034 (Version 1)
Quarter: 2019Q2

REPORT INFORMATION
  Report Type: Spontaneous
  Country: US (occurrence: US)
  Receive Date: 20190403
  Receipt Date: 20190403
  Transmission Date: 20190711
  Serious: No
  Sender: FDA-Public Use
  Company Number: US-PRINSTON PHARMACEUTICAL INC.-2018PRN00994

PATIENT
  Sex: Female

DRUGS (2)
  1. VALSARTAN. [Suspect]
     Active Substance: VALSARTAN
     Indication: BLOOD PRESSURE ABNORMAL
     Dosage: 320 MG, 1X/DAY WITH WATER
     Dates: start: 20131125
  2. VALSARTAN. [Suspect]
     Active Substance: VALSARTAN
     Indication: STENT PLACEMENT

REACTIONS (1)
  - Blood pressure increased [Unknown]
